FAERS Safety Report 8244395-X (Version None)
Quarter: 2012Q1

REPORT INFORMATION
  Report Type: 
  Country: None (occurrence: None)
  Receive Date: 20120329
  Receipt Date: 20120322
  Transmission Date: 20120608
  Serious: Yes (Life-Threatening)
  Sender: FDA-Public Use
  Company Number: JP-PFIZER INC-2011316314

PATIENT
  Age: 81 Year
  Sex: Female
  Weight: 45 kg

DRUGS (11)
  1. PYRINAZIN [Concomitant]
     Indication: METASTASES TO BONE
     Dosage: 1 G, 4X/DAY
     Route: 048
     Dates: start: 20111109
  2. AMITRIPTYLINE HCL [Concomitant]
     Indication: METASTASES TO BONE
     Dosage: 10 MG, 1X/DAY
     Route: 048
     Dates: start: 20111115, end: 20111123
  3. OXYCONTIN [Concomitant]
     Indication: METASTASES TO BONE
     Dosage: 5 MG, 2X/DAY
     Route: 048
     Dates: start: 20111122, end: 20111123
  4. CELECOXIB [Suspect]
     Indication: METASTASES TO BONE
     Dosage: 100 MG, 2X/DAY
     Route: 048
     Dates: start: 20111110, end: 20111123
  5. BETAMETHASONE [Concomitant]
     Indication: METASTASES TO BONE
     Dosage: 1 MG, 2X/DAY
     Route: 048
     Dates: start: 20111109, end: 20111123
  6. METHYCOBAL [Concomitant]
     Indication: METASTASES TO BONE
     Dosage: 0.5 MG, 3X/DAY
     Route: 048
     Dates: start: 20111115, end: 20111123
  7. PROCHLORPERAZINE [Concomitant]
     Indication: PROPHYLAXIS OF NAUSEA AND VOMITING
     Dosage: 5 MG, 3X/DAY
     Route: 048
     Dates: start: 20111122, end: 20111123
  8. LANSOPRAZOLE [Suspect]
     Indication: PROPHYLAXIS
     Dosage: 15 MG, 1X/DAY
     Route: 048
     Dates: start: 20111109, end: 20111123
  9. OXYCODONE HYDROCHLORIDE [Concomitant]
     Indication: METASTASES TO BONE
     Dosage: UNK
     Route: 048
     Dates: start: 20111111, end: 20111123
  10. PYDOXAL [Concomitant]
     Indication: METASTASES TO BONE
     Dosage: 10 MG, 3X/DAY
     Route: 048
     Dates: start: 20110712, end: 20111123
  11. LAXOBERON [Concomitant]
     Indication: CONSTIPATION PROPHYLAXIS
     Dosage: 0.5 ML, 1X/DAY
     Route: 048
     Dates: start: 20111122, end: 20111123

REACTIONS (2)
  - ERYTHEMA MULTIFORME [None]
  - OFF LABEL USE [None]
